FAERS Safety Report 14974565 (Version 1)
Quarter: 2018Q2

REPORT INFORMATION
  Report Type: Spontaneous
  Country: US (occurrence: US)
  Receive Date: 20180605
  Receipt Date: 20180605
  Transmission Date: 20180711
  Serious: Yes (Other)
  Sender: FDA-Public Use
  Company Number: US-SEBELA IRELAND LIMITED-2018SEB00143

PATIENT
  Age: 53 Year
  Sex: Male

DRUGS (1)
  1. ANALPRAM HC CREAM 2.5% [Suspect]
     Active Substance: HYDROCORTISONE ACETATE\PRAMOXINE HYDROCHLORIDE

REACTIONS (3)
  - Foot fracture [Not Recovered/Not Resolved]
  - Insurance issue [None]
  - Therapeutic procedure [Unknown]

NARRATIVE: CASE EVENT DATE: 201802
